FAERS Safety Report 4295811-X (Version None)
Quarter: 2004Q1

REPORT INFORMATION
  Report Type: 
  Country: None (occurrence: None)
  Receive Date: 20040216
  Receipt Date: 20031111
  Transmission Date: 20041129
  Serious: No
  Sender: FDA-Public Use
  Company Number: US-GLAXOSMITHKLINE-A0439277A

PATIENT
  Age: 28 Year
  Sex: Female

DRUGS (4)
  1. LAMICTAL [Suspect]
     Indication: EPILEPSY
     Dosage: 200MG THREE TIMES PER DAY
     Route: 048
  2. CHLORAZEPATE [Concomitant]
     Dosage: 3.75MG AS REQUIRED
  3. VALIUM [Concomitant]
  4. LORA TAB [Concomitant]
     Dosage: 7.5MG AS REQUIRED

REACTIONS (4)
  - HEADACHE [None]
  - MEDICATION ERROR [None]
  - NAUSEA [None]
  - TREMOR [None]
